FAERS Safety Report 7941697-9 (Version None)
Quarter: 2011Q4

REPORT INFORMATION
  Report Type: 
  Country: None (occurrence: None)
  Receive Date: 20111128
  Receipt Date: 20111128
  Transmission Date: 20120403
  Serious: Yes (Other)
  Sender: FDA-Public Use
  Company Number: None

PATIENT
  Age: 69 Year
  Sex: Female
  Weight: 95.254 kg

DRUGS (1)
  1. NIASPAN [Suspect]
     Indication: HIGH DENSITY LIPOPROTEIN ABNORMAL
     Dosage: 500MGS
     Route: 048
     Dates: start: 20110901, end: 20111001

REACTIONS (3)
  - RASH ERYTHEMATOUS [None]
  - INSOMNIA [None]
  - RASH PRURITIC [None]
